FAERS Safety Report 25166975 (Version 2)
Quarter: 2025Q2

REPORT INFORMATION
  Report Type: Spontaneous
  Country: JP (occurrence: JP)
  Receive Date: 20250407
  Receipt Date: 20250415
  Transmission Date: 20250717
  Serious: Yes (Other)
  Sender: Haleon PLC
  Company Number: JP-002147023-NVSJ2025JP003637

PATIENT
  Age: 80 Year
  Sex: Male

DRUGS (9)
  1. DICLOFENAC SODIUM [Suspect]
     Active Substance: DICLOFENAC SODIUM
     Indication: Osteoarthritis
     Route: 048
  2. NEUROTROPIN [Concomitant]
     Active Substance: NEUROTROPIN
     Indication: Osteoarthritis
     Route: 048
  3. AMLODIPINE [Concomitant]
     Active Substance: AMLODIPINE BESYLATE
     Indication: Hypertension
     Route: 048
  4. LEMBOREXANT [Concomitant]
     Active Substance: LEMBOREXANT
     Indication: Insomnia
     Route: 048
  5. PREGABALIN [Concomitant]
     Active Substance: PREGABALIN
     Indication: Osteoarthritis
     Route: 048
  6. ASPIRIN [Suspect]
     Active Substance: ASPIRIN
     Indication: Retinal vein occlusion
     Route: 048
  7. REBAMIPIDE [Concomitant]
     Active Substance: REBAMIPIDE
     Indication: Osteoarthritis
     Route: 048
  8. VALSARTAN [Concomitant]
     Active Substance: VALSARTAN
     Indication: Hypertension
     Route: 048
  9. BISOPROLOL FUMARATE [Concomitant]
     Active Substance: BISOPROLOL FUMARATE
     Indication: Hypertension
     Route: 048

REACTIONS (6)
  - Peptic ulcer [Unknown]
  - Dizziness [Unknown]
  - Faeces discoloured [Unknown]
  - Nausea [Unknown]
  - Gastrointestinal haemorrhage [Unknown]
  - Vomiting [Unknown]
